FAERS Safety Report 7681714 (Version 3)
Quarter: 2013Q3

REPORT INFORMATION
  Report Type: Spontaneous
  Country: US (occurrence: US)
  Receive Date: 20101124
  Receipt Date: 20130730
  Transmission Date: 20140515
  Serious: Yes (Other)
  Sender: FDA-Public Use
  Company Number: US-JNJFOC-20101105117

PATIENT
  Age: 14 Year
  Sex: Male
  Weight: 44.6 kg

DRUGS (4)
  1. REMICADE [Suspect]
     Indication: CROHN^S DISEASE
     Route: 042
     Dates: end: 2010
  2. TYLENOL [Concomitant]
     Indication: PREMEDICATION
  3. ZYRTEC [Concomitant]
     Indication: PREMEDICATION
  4. PEPCID [Concomitant]
     Indication: PREMEDICATION

REACTIONS (4)
  - Dyspnoea [Recovered/Resolved]
  - Systemic lupus erythematosus [Unknown]
  - Infusion related reaction [Recovered/Resolved]
  - Anxiety [Recovered/Resolved]
